FAERS Safety Report 18189315 (Version 1)
Quarter: 2020Q3

REPORT INFORMATION
  Report Type: Report from Study
  Country: US (occurrence: US)
  Receive Date: 20200825
  Receipt Date: 20200825
  Transmission Date: 20201103
  Serious: Yes (Death)
  Sender: FDA-Public Use
  Company Number: US-TAIHO ONCOLOGY  INC-EU-2020-02962

PATIENT
  Age: 59 Year
  Sex: Female
  Weight: 46.31 kg

DRUGS (3)
  1. LONSURF [Suspect]
     Active Substance: TIPIRACIL HYDROCHLORIDE\TRIFLURIDINE
     Indication: COLORECTAL CANCER METASTATIC
     Dosage: CYCLE UNKNOWN
     Route: 048
     Dates: start: 202007
  2. COLACE [Concomitant]
     Active Substance: DOCUSATE SODIUM
  3. SENOKOT [Concomitant]
     Active Substance: SENNOSIDES

REACTIONS (1)
  - Death [Fatal]

NARRATIVE: CASE EVENT DATE: 20200801
